FAERS Safety Report 14384920 (Version 1)
Quarter: 2018Q1

REPORT INFORMATION
  Report Type: Report from Study
  Country: ZA (occurrence: ZA)
  Receive Date: 20180115
  Receipt Date: 20180115
  Transmission Date: 20180509
  Serious: Yes (Death, Other)
  Sender: FDA-Public Use
  Company Number: ZA-MYLANLABS-2018M1001153

PATIENT
  Sex: Female

DRUGS (2)
  1. FENTANYL. [Suspect]
     Active Substance: FENTANYL
     Indication: ANALGESIC THERAPY
     Dosage: 500 MICROGRAM
     Route: 042
  2. BUPIVACAINE. [Suspect]
     Active Substance: BUPIVACAINE
     Indication: ANALGESIC THERAPY
     Dosage: UNK
     Route: 042

REACTIONS (2)
  - Incorrect route of drug administration [Fatal]
  - Death [Fatal]
